FAERS Safety Report 4927487-X (Version None)
Quarter: 2006Q1

REPORT INFORMATION
  Report Type: 
  Country: None (occurrence: None)
  Receive Date: 20060228
  Receipt Date: 20050829
  Transmission Date: 20060701
  Serious: Yes (Hospitalization)
  Sender: FDA-Public Use
  Company Number: US-MERCK-0508USA04838

PATIENT
  Age: 53 Year
  Sex: Male
  Weight: 80 kg

DRUGS (8)
  1. VIOXX [Suspect]
     Indication: INFLAMMATION
     Route: 048
     Dates: start: 20000101, end: 20040101
  2. HYDROCODONE HYDROCHLORIDE [Concomitant]
     Route: 065
  3. SOMA [Concomitant]
     Route: 065
  4. OXYCONTIN [Concomitant]
     Route: 065
  5. OXYCODONE [Concomitant]
     Route: 065
  6. ASPIRIN [Concomitant]
     Route: 065
  7. COLACE [Concomitant]
     Route: 065
  8. SENNA [Concomitant]
     Route: 065

REACTIONS (5)
  - CARDIAC DISORDER [None]
  - CORONARY ARTERY DISEASE [None]
  - CORONARY ARTERY OCCLUSION [None]
  - NECK PAIN [None]
  - VERTEBRAL INJURY [None]
